FAERS Safety Report 4554623-X (Version None)
Quarter: 2005Q1

REPORT INFORMATION
  Report Type: 
  Country: None (occurrence: None)
  Receive Date: 20041228
  Receipt Date: 20041122
  Transmission Date: 20050727
  Serious: Yes (Death)
  Sender: FDA-Public Use
  Company Number: 200420424BWH

PATIENT
  Age: 65 Year
  Sex: Female
  Weight: 73.4827 kg

DRUGS (14)
  1. CIPRO XR [Suspect]
     Indication: KIDNEY INFECTION
     Dosage: 500 MG, QD, ORAL
     Route: 048
     Dates: start: 20040810
  2. CIPRO XR [Suspect]
     Indication: URINARY TRACT INFECTION
     Dosage: 500 MG, QD, ORAL
     Route: 048
     Dates: start: 20040810
  3. ALBUTEROL [Concomitant]
  4. AEROBID [Concomitant]
  5. COMBIVENT [Concomitant]
  6. SINGULAIR [Concomitant]
  7. MAXZIDE [Concomitant]
  8. DIOVAN [Concomitant]
  9. PAXIL [Concomitant]
  10. MULTI-VITAMINS [Concomitant]
  11. ASPIRIN [Concomitant]
  12. FERROUS SULFATE TAB [Concomitant]
  13. BUSPAR [Concomitant]
  14. TRIAMTERENE AND HYDROCHLOROTHIAZIDE [Concomitant]

REACTIONS (6)
  - ANAPHYLACTIC REACTION [None]
  - DYSPNOEA [None]
  - FEELING HOT [None]
  - OEDEMA MOUTH [None]
  - THROAT IRRITATION [None]
  - THROAT TIGHTNESS [None]
